FAERS Safety Report 13047620 (Version 1)
Quarter: 2016Q4

REPORT INFORMATION
  Report Type: Spontaneous
  Country: US (occurrence: US)
  Receive Date: 20161220
  Receipt Date: 20161220
  Transmission Date: 20170207
  Serious: Yes (Death, Hospitalization)
  Sender: FDA-Public Use
  Company Number: US-INGENUS PHARMACEUTICALS NJ, LLC-ING201612-000181

PATIENT
  Age: 49 Year
  Sex: Male

DRUGS (2)
  1. PROBENECID AND COLCHICINE [Suspect]
     Active Substance: COLCHICINE\PROBENECID
     Indication: GOUT
  2. CLARITHROMYCIN. [Interacting]
     Active Substance: CLARITHROMYCIN

REACTIONS (7)
  - Shock [Unknown]
  - Pancytopenia [Recovered/Resolved]
  - Accidental poisoning [Fatal]
  - Death [Fatal]
  - Acute kidney injury [Unknown]
  - Multiple organ dysfunction syndrome [Not Recovered/Not Resolved]
  - Drug interaction [Fatal]
